FAERS Safety Report 13214525 (Version 3)
Quarter: 2017Q2

REPORT INFORMATION
  Report Type: Spontaneous
  Country: JP (occurrence: JP)
  Receive Date: 20170210
  Receipt Date: 20170405
  Transmission Date: 20170830
  Serious: Yes (Other)
  Sender: FDA-Public Use
  Company Number: JP-ALLERGAN-1704995US

PATIENT
  Age: 89 Year
  Sex: Female
  Weight: 46 kg

DRUGS (6)
  1. LAFUTIDINE [Concomitant]
     Active Substance: LAFUTIDINE
     Indication: PRODUCT USED FOR UNKNOWN INDICATION
     Dosage: 10 MG, QD
     Route: 048
  2. MILNACIPRAN - BP [Suspect]
     Active Substance: MILNACIPRAN
     Indication: DEPRESSION
     Dosage: 15 MG, BID
     Route: 048
     Dates: start: 2007, end: 20170202
  3. AMLODIPIN [Concomitant]
     Active Substance: AMLODIPINE BESYLATE
     Indication: PRODUCT USED FOR UNKNOWN INDICATION
     Dosage: 2.5 MG, UNK
     Route: 048
  4. GRAMALIL [Concomitant]
     Active Substance: TIAPRIDE HYDROCHLORIDE
     Indication: PRODUCT USED FOR UNKNOWN INDICATION
     Dosage: 2.5 MG, UNK
     Route: 048
  5. MAGLAX [Concomitant]
     Active Substance: MAGNESIUM OXIDE
     Indication: PRODUCT USED FOR UNKNOWN INDICATION
     Dosage: 100 MG, BID
     Route: 048
  6. LIMARMONE [Concomitant]
     Active Substance: LIMAPROST
     Indication: PRODUCT USED FOR UNKNOWN INDICATION
     Dosage: 5 ?G, BID
     Route: 048

REACTIONS (3)
  - Generalised erythema [Recovering/Resolving]
  - Pyrexia [Recovered/Resolved]
  - Face oedema [Recovering/Resolving]

NARRATIVE: CASE EVENT DATE: 20170201
